FAERS Safety Report 19907769 (Version 1)
Quarter: 2021Q4

REPORT INFORMATION
  Report Type: Spontaneous
  Country: CN (occurrence: CN)
  Receive Date: 20211001
  Receipt Date: 20211001
  Transmission Date: 20220303
  Serious: Yes (Hospitalization)
  Sender: FDA-Public Use
  Company Number: CN-BAXTER-2021BAX026337

PATIENT
  Age: 58 Year
  Sex: Male
  Weight: 55 kg

DRUGS (8)
  1. CYCLOPHOSPHAMIDE [Suspect]
     Active Substance: CYCLOPHOSPHAMIDE
     Indication: Natural killer-cell lymphoblastic lymphoma
     Dosage: 0.9% NS 100ML + CYCLOPHOSPHAMIDE 1.3G
     Route: 041
     Dates: start: 20190413, end: 20190413
  2. SODIUM CHLORIDE [Suspect]
     Active Substance: SODIUM CHLORIDE
     Indication: Medication dilution
     Dosage: CYCLOPHOSPHAMIDE 1.3G + 0.9% SODIUM CHLORIDE 100ML
     Route: 041
     Dates: start: 20190413, end: 20190413
  3. SODIUM CHLORIDE [Suspect]
     Active Substance: SODIUM CHLORIDE
     Dosage: VINCRISTINE SULFATE 2MG + 0.9% SODIUM CHLORIDE
     Route: 041
     Dates: start: 20190413, end: 20190413
  4. DEXTROSE [Suspect]
     Active Substance: DEXTROSE
     Indication: Medication dilution
     Dosage: DOXORUBICIN LIPOSOME 60MG + 5% GLUCOSE 250ML
     Route: 041
     Dates: start: 20190413, end: 20190413
  5. DOXORUBICIN HYDROCHLORIDE [Suspect]
     Active Substance: DOXORUBICIN HYDROCHLORIDE
     Indication: Natural killer-cell lymphoblastic lymphoma
     Dosage: 5% GS 250ML + DOXORUBICIN LIPOSOME 60 MG
     Route: 041
     Dates: start: 20190413, end: 20190413
  6. VINCRISTINE SULFATE [Suspect]
     Active Substance: VINCRISTINE SULFATE
     Indication: Natural killer-cell lymphoblastic lymphoma
     Dosage: 0.9% NS 50ML + VINCRISTINE 2 MG
     Route: 041
     Dates: start: 20190413, end: 20190413
  7. PEGASPARGASE [Suspect]
     Active Substance: PEGASPARGASE
     Indication: Natural killer-cell lymphoblastic lymphoma
     Route: 030
     Dates: start: 20190414, end: 20190414
  8. PREDNISONE ACETATE [Suspect]
     Active Substance: PREDNISONE ACETATE
     Indication: Natural killer-cell lymphoblastic lymphoma
     Dosage: DOSAGE FROM: TABLET
     Route: 048
     Dates: start: 20190413, end: 20190418

REACTIONS (1)
  - Myelosuppression [Recovering/Resolving]

NARRATIVE: CASE EVENT DATE: 20190426
